FAERS Safety Report 12440350 (Version 1)
Quarter: 2016Q2

REPORT INFORMATION
  Report Type: Report from Study
  Country: US (occurrence: US)
  Receive Date: 20160606
  Receipt Date: 20160606
  Transmission Date: 20160815
  Serious: No
  Sender: FDA-Public Use
  Company Number: US-AMGEN-USASL2016032123

PATIENT
  Age: 67 Year
  Sex: Female

DRUGS (30)
  1. GABAPENTIN. [Concomitant]
     Active Substance: GABAPENTIN
     Dosage: 300 MG, 1CAPSULE AT BEDTIME PO
     Route: 048
  2. HCTZ [Concomitant]
     Active Substance: HYDROCHLOROTHIAZIDE
     Dosage: 12.5 MG, UNK
  3. FUROSEMIDE. [Concomitant]
     Active Substance: FUROSEMIDE
     Dosage: 20 MG, EVERY AM
  4. CALCIUM [Concomitant]
     Active Substance: CALCIUM
     Dosage: UNK UNK, 1 CAPLET BID PO
     Route: 048
  5. LATANOPROST. [Concomitant]
     Active Substance: LATANOPROST
     Indication: GLAUCOMA
     Dosage: 0.005 %, 1 DROP LEFT EYE AT BEDTIME, ON 4-5
  6. CHONDROITIN SULFATE [Concomitant]
     Active Substance: SODIUM CHONDROITIN SULFATE
     Dosage: 100 MG, UNK
  7. LUMIGAN [Concomitant]
     Active Substance: BIMATOPROST
     Dosage: 0.01 %, 1 DROP RIGHT EYE EACH NIGHT
  8. PROCRIT [Suspect]
     Active Substance: ERYTHROPOIETIN
     Indication: CHRONIC KIDNEY DISEASE
     Dosage: 20000 UNIT, EVERY 2 WEEKS
     Route: 030
     Dates: start: 201504
  9. IBUPROFEN. [Concomitant]
     Active Substance: IBUPROFEN
     Dosage: 600 MG. 1-2CAPLETS EVERY DAY PRN
  10. COENZYME Q10 [Concomitant]
     Active Substance: UBIDECARENONE
     Dosage: 300MG. SOFTGEL, 1 DAILY AM PO
     Route: 048
  11. LISINOPRIL. [Concomitant]
     Active Substance: LISINOPRIL
     Dosage: 20 MG, BID
  12. TIMOLOL. [Concomitant]
     Active Substance: TIMOLOL
     Indication: GLAUCOMA
     Dosage: 0.5 %, 1 DROP RIGHT EYE IN AM
  13. CALCIUM CITRATE + D [Concomitant]
     Dosage: 630 MG, UNK
  14. ESTER C                            /00008001/ [Concomitant]
     Dosage: 500 MG, 1 CAPLET BID PO
     Route: 048
  15. IRON [Concomitant]
     Active Substance: IRON
     Dosage: 65 MG, UNK
  16. SIMVASTATIN. [Concomitant]
     Active Substance: SIMVASTATIN
     Dosage: 40 MG, 1 TABLET Q PM
     Route: 048
  17. GLUCOSAMINE SULFATE [Concomitant]
     Active Substance: GLUCOSAMINE SULFATE
     Dosage: 200 MG, UNK
     Route: 048
  18. GLUCOSAMINE HYDROCHLORIDE [Concomitant]
     Active Substance: GLUCOSAMINE HYDROCHLORIDE
     Dosage: 100 MG, UNK
     Route: 048
  19. MSM [Concomitant]
     Active Substance: DIMETHYL SULFONE
     Dosage: 1000 MG, 2 CAPSULES A DAY PO
     Route: 048
  20. VITAMIN B12 [Concomitant]
     Active Substance: CYANOCOBALAMIN
     Dosage: 1000 MG, DAILY
     Route: 048
  21. PROCRIT [Suspect]
     Active Substance: ERYTHROPOIETIN
     Indication: ANAEMIA
     Dosage: 20,000 UNITS, EVERY TWO WEEKS
     Route: 030
     Dates: start: 20150904
  22. HYDRALAZINE [Concomitant]
     Active Substance: HYDRALAZINE HYDROCHLORIDE
     Dosage: 50 MG, 1 TAB DAILY 1/2 AM, 1/2 PM
  23. CENTRUM SILVER                     /02363801/ [Concomitant]
     Active Substance: MINERALS\VITAMINS
     Dosage: 1 DAILY AM
  24. LEVOXYL [Concomitant]
     Active Substance: LEVOTHYROXINE SODIUM
     Dosage: 75 MCG, DAILY
     Route: 048
  25. ESTROGEN [Concomitant]
     Active Substance: ESTRONE\SUS SCROFA OVARY
     Dosage: .05 MG. PATCH 1 WEEKLY
  26. MANGANESE [Concomitant]
     Active Substance: MANGANESE\MANGANESE CHLORIDE
     Dosage: 100 MG, 2 CAPSULES WITH EACH MEAL PO
     Route: 048
  27. VIVELLE [Concomitant]
     Active Substance: ESTRADIOL
     Dosage: .05 MG, PATCH 1 WEEKLY
  28. OMEPRAZOLE. [Concomitant]
     Active Substance: OMEPRAZOLE
     Dosage: 20 MG, 1 CAPSULE EACH AM
     Route: 048
  29. RECLAST [Concomitant]
     Active Substance: ZOLEDRONIC ACID
     Dosage: UNK
     Dates: start: 201508
  30. FERROUS SULFATE. [Concomitant]
     Active Substance: FERROUS SULFATE
     Dosage: UNK, 1 TABLET DAILY
     Route: 048

REACTIONS (2)
  - Haemoglobin abnormal [Recovering/Resolving]
  - Fatigue [Recovering/Resolving]

NARRATIVE: CASE EVENT DATE: 201412
